FAERS Safety Report 13602551 (Version 2)
Quarter: 2017Q4

REPORT INFORMATION
  Report Type: Spontaneous
  Country: US (occurrence: US)
  Receive Date: 20170601
  Receipt Date: 20171212
  Transmission Date: 20180320
  Serious: No
  Sender: FDA-Public Use
  Company Number: US-BAYER-2017-100281

PATIENT
  Age: 50 Year
  Sex: Female
  Weight: 104.31 kg

DRUGS (2)
  1. GADAVIST [Suspect]
     Active Substance: GADOBUTROL
     Indication: NUCLEAR MAGNETIC RESONANCE IMAGING BRAIN
     Dosage: 11 ML, ONCE
     Route: 042
     Dates: start: 20170503, end: 20170503
  2. GADAVIST [Suspect]
     Active Substance: GADOBUTROL
     Indication: AMNESIA

REACTIONS (4)
  - Eye irritation [Unknown]
  - Urticaria [Unknown]
  - Swelling face [Recovered/Resolved]
  - Throat irritation [Unknown]

NARRATIVE: CASE EVENT DATE: 20170503
